FAERS Safety Report 21010731 (Version 1)
Quarter: 2022Q2

REPORT INFORMATION
  Report Type: Spontaneous
  Country: HU (occurrence: HU)
  Receive Date: 20220627
  Receipt Date: 20220627
  Transmission Date: 20220721
  Serious: Yes (Other)
  Sender: FDA-Public Use
  Company Number: HU-002147023-NVSC2022HU134634

PATIENT
  Age: 31 Year
  Sex: Female

DRUGS (5)
  1. CYTARABINE [Suspect]
     Active Substance: CYTARABINE
     Indication: Acute myeloid leukaemia
     Dosage: UNK (HIGH DOSE)
     Route: 065
     Dates: start: 199907
  2. MITOXANTRONE [Concomitant]
     Active Substance: MITOXANTRONE HYDROCHLORIDE
     Indication: Acute myeloid leukaemia
     Dosage: UNK
     Dates: start: 199907
  3. HYDROXYUREA [Concomitant]
     Active Substance: HYDROXYUREA
     Dosage: 500 MG, 1X/DAY (500 MG, QD)
     Dates: start: 201107
  4. CYTARABINE [Concomitant]
     Active Substance: CYTARABINE
     Dosage: UNK (HIGH DOSE) (4X)
  5. ASPIRIN [Concomitant]
     Active Substance: ASPIRIN
     Dosage: 100 MG, 1X/DAY (100 MG, QD)
     Dates: start: 201107

REACTIONS (13)
  - Interstitial lung disease [Unknown]
  - Myelofibrosis [Unknown]
  - White blood cell count increased [Not Recovered/Not Resolved]
  - Platelet count increased [Recovered/Resolved]
  - Gene mutation identification test positive [Unknown]
  - Intermenstrual bleeding [Unknown]
  - Thrombocytosis [Unknown]
  - Splenomegaly [Recovering/Resolving]
  - Blood lactate dehydrogenase increased [Not Recovered/Not Resolved]
  - Hepatomegaly [Unknown]
  - Leiomyoma [Unknown]
  - Haemoglobin decreased [Unknown]
  - Headache [Unknown]

NARRATIVE: CASE EVENT DATE: 19990101
